FAERS Safety Report 8074186-4 (Version None)
Quarter: 2012Q1

REPORT INFORMATION
  Report Type: 
  Country: None (occurrence: None)
  Receive Date: 20120126
  Receipt Date: 20120124
  Transmission Date: 20120608
  Serious: Yes (Other)
  Sender: FDA-Public Use
  Company Number: US-PFIZER INC-2011305330

PATIENT
  Sex: Male

DRUGS (5)
  1. NITROSTAT [Suspect]
     Dosage: UNK
  2. VENLAFAXINE HYDROCHLORIDE [Concomitant]
     Dosage: 75 MG, UNK
  3. TOPROL-XL [Suspect]
     Dosage: UNK
     Route: 048
  4. LIPITOR [Suspect]
     Dosage: UNK
     Route: 048
  5. EFFEXOR XR [Suspect]
     Dosage: UNK
     Route: 048

REACTIONS (6)
  - HYPOACUSIS [None]
  - MUSCLE SPASMS [None]
  - FEELING COLD [None]
  - MYDRIASIS [None]
  - DECREASED APPETITE [None]
  - FEELING ABNORMAL [None]
